FAERS Safety Report 22235067 (Version 1)
Quarter: 2023Q2

REPORT INFORMATION
  Report Type: Other
  Country: GR (occurrence: None)
  Receive Date: 20230420
  Receipt Date: 20230420
  Transmission Date: 20230721
  Serious: Yes (Hospitalization)
  Sender: FDA-Public Use
  Company Number: GR-ROCHE-3335217

PATIENT
  Sex: Male

DRUGS (1)
  1. RITUXIMAB [Suspect]
     Active Substance: RITUXIMAB
     Indication: Product used for unknown indication
     Route: 065

REACTIONS (1)
  - COVID-19 [Unknown]
